FAERS Safety Report 4833877-6 (Version None)
Quarter: 2005Q4

REPORT INFORMATION
  Report Type: 
  Country: None (occurrence: None)
  Receive Date: 20051122
  Receipt Date: 20051110
  Transmission Date: 20060501
  Serious: Yes (Hospitalization)
  Sender: FDA-Public Use
  Company Number: 2005UW17177

PATIENT
  Age: 43 Year
  Sex: Male

DRUGS (5)
  1. SEROQUEL [Suspect]
     Route: 048
  2. SEROQUEL [Suspect]
     Route: 048
  3. VICODIN [Concomitant]
  4. AMOXICILLIN [Concomitant]
  5. IBUPROFEN [Concomitant]

REACTIONS (6)
  - ABDOMINAL PAIN [None]
  - CELLULITIS [None]
  - LEUKOPENIA [None]
  - MOUTH ULCERATION [None]
  - NEUTROPENIA [None]
  - PHARYNGOLARYNGEAL PAIN [None]
